FAERS Safety Report 6329147-X (Version None)
Quarter: 2009Q3

REPORT INFORMATION
  Report Type: 
  Country: None (occurrence: None)
  Receive Date: 20090826
  Receipt Date: 20090818
  Transmission Date: 20100115
  Serious: Yes (Hospitalization)
  Sender: FDA-Public Use
  Company Number: JP-BAYER-200912311BYL

PATIENT
  Age: 66 Year
  Sex: Female
  Weight: 51 kg

DRUGS (11)
  1. NEXAVAR [Suspect]
     Indication: HEPATIC CANCER STAGE III
     Dosage: TOTAL DAILY DOSE: 800 MG  UNIT DOSE: 200 MG
     Route: 048
     Dates: start: 20090701, end: 20090707
  2. NEXAVAR [Suspect]
     Dosage: UNIT DOSE: 200 MG
     Route: 048
     Dates: start: 20090728
  3. UREPEARL [Concomitant]
     Indication: PRURITUS GENERALISED
     Route: 061
     Dates: start: 20090703
  4. CELESTAMINE TAB [Concomitant]
     Indication: PRURITUS GENERALISED
     Route: 048
     Dates: start: 20090703
  5. LASIX [Concomitant]
     Dosage: UNIT DOSE: 40 MG
     Route: 048
  6. ZYRTEC [Concomitant]
     Route: 048
     Dates: start: 20090706
  7. TAKEPRON [Concomitant]
     Route: 048
     Dates: start: 20090707
  8. GASTROM [Concomitant]
     Route: 048
     Dates: start: 20090707
  9. MORIHEPAMIN [Concomitant]
     Route: 042
     Dates: start: 20090707
  10. PORTOLAC [Concomitant]
     Route: 048
     Dates: start: 20090710
  11. NAPROXEN [Concomitant]
     Route: 048
     Dates: start: 20090710

REACTIONS (5)
  - ABDOMINAL PAIN UPPER [None]
  - DIARRHOEA [None]
  - DIZZINESS [None]
  - HEPATIC FUNCTION ABNORMAL [None]
  - RASH [None]
